FAERS Safety Report 5774032-5 (Version None)
Quarter: 2008Q2

REPORT INFORMATION
  Report Type: 
  Country: None (occurrence: None)
  Receive Date: 20080616
  Receipt Date: 20080604
  Transmission Date: 20081010
  Serious: Yes (Other)
  Sender: FDA-Public Use
  Company Number: US-ROCHE-568899

PATIENT
  Sex: Female
  Weight: 63.5 kg

DRUGS (3)
  1. CAPECITABINE [Suspect]
     Indication: BREAST CANCER
     Dosage: THERAPY ALREADY COMPLETED
     Route: 065
     Dates: start: 20040507, end: 20041001
  2. DOCETAXEL [Suspect]
     Indication: BREAST CANCER
     Dosage: THERAPY ALREADY COMPLETED
     Route: 042
     Dates: start: 20040507, end: 20041001
  3. TAMOXIFEN CITRATE [Concomitant]
     Indication: BREAST CANCER
     Route: 048
     Dates: start: 20041026, end: 20080530

REACTIONS (1)
  - UTERINE CANCER [None]
